FAERS Safety Report 15695227 (Version 1)
Quarter: 2018Q4

REPORT INFORMATION
  Report Type: Spontaneous
  Country: US (occurrence: US)
  Receive Date: 20181126
  Receipt Date: 20181126
  Transmission Date: 20190205
  Serious: Yes (Other)
  Sender: FDA-Public Use
  Company Number: None

PATIENT
  Age: 42 Year
  Sex: Female
  Weight: 68.04 kg

DRUGS (1)
  1. DEXAMPHETAMINE [Suspect]
     Active Substance: AMPHETAMINE
     Dosage: ?          QUANTITY:1 DF DOSAGE FORM;?
     Route: 048

REACTIONS (5)
  - Urticaria [None]
  - Aggression [None]
  - Arthralgia [None]
  - Irritability [None]
  - Swelling [None]

NARRATIVE: CASE EVENT DATE: 20181105
